FAERS Safety Report 7073486-4 (Version None)
Quarter: 2010Q4

REPORT INFORMATION
  Report Type: 
  Country: None (occurrence: None)
  Receive Date: 20101029
  Receipt Date: 20100625
  Transmission Date: 20110411
  Serious: No
  Sender: FDA-Public Use
  Company Number: A0867220A

PATIENT
  Sex: Female

DRUGS (10)
  1. ADVAIR DISKUS 100/50 [Suspect]
     Indication: ASTHMA
     Dosage: 1PUFF PER DAY
     Route: 055
  2. CLARITIN [Concomitant]
  3. ASPIRIN [Concomitant]
  4. PLAVIX [Concomitant]
  5. DILTIAZEM [Concomitant]
  6. AVALIDE [Concomitant]
  7. POTASSIUM CHLORIDE [Concomitant]
  8. TRICOR [Concomitant]
  9. PREMARIN [Concomitant]
  10. ALEVE (CAPLET) [Concomitant]

REACTIONS (1)
  - DYSPHONIA [None]
